FAERS Safety Report 7558832-7 (Version None)
Quarter: 2011Q2

REPORT INFORMATION
  Report Type: 
  Country: None (occurrence: None)
  Receive Date: 20110613
  Receipt Date: 20110527
  Transmission Date: 20111010
  Serious: Yes (Other)
  Sender: FDA-Public Use
  Company Number: 2011NA000046

PATIENT
  Sex: Male

DRUGS (3)
  1. LISINOPRIL [Concomitant]
  2. DICLOFENAC SODIUM [Suspect]
     Indication: OSTEOARTHRITIS
     Dosage: 100 MG; QD;
     Dates: start: 20020101, end: 20020101
  3. DICLOFENAC SODIUM [Suspect]
     Indication: OSTEOARTHRITIS
     Dosage: 100 MG; QD;
     Dates: start: 20040101, end: 20040101

REACTIONS (2)
  - NEPHROTIC SYNDROME [None]
  - PAIN [None]
